FAERS Safety Report 19075640 (Version 4)
Quarter: 2021Q2

REPORT INFORMATION
  Report Type: Report from Study
  Country: JP (occurrence: JP)
  Receive Date: 20210331
  Receipt Date: 20210624
  Transmission Date: 20210717
  Serious: Yes (Hospitalization)
  Sender: FDA-Public Use
  Company Number: JP-ROCHE-2797343

PATIENT
  Age: 61 Year
  Sex: Female
  Weight: 60 kg

DRUGS (8)
  1. MAGNESIUM OXIDE. [Concomitant]
     Active Substance: MAGNESIUM OXIDE
     Dates: start: 20190110
  2. PREDNISOLONE. [Concomitant]
     Active Substance: PREDNISOLONE
     Route: 048
     Dates: start: 20201203, end: 20210225
  3. BEVACIZUMAB. [Suspect]
     Active Substance: BEVACIZUMAB
     Indication: GLIOBLASTOMA
     Route: 041
     Dates: start: 20201211, end: 20210219
  4. GLYCYRRHIZA [Concomitant]
     Active Substance: LICORICE
     Route: 048
     Dates: start: 20190404
  5. SAMTIREL [Concomitant]
     Active Substance: ATOVAQUONE
     Route: 048
     Dates: start: 20190310
  6. E KEPPRA [Concomitant]
     Active Substance: LEVETIRACETAM
  7. VIMPAT [Concomitant]
     Active Substance: LACOSAMIDE
  8. NEXIUM [Concomitant]
     Active Substance: ESOMEPRAZOLE MAGNESIUM

REACTIONS (1)
  - Cholecystitis acute [Recovered/Resolved]

NARRATIVE: CASE EVENT DATE: 20210228
